FAERS Safety Report 21280180 (Version 1)
Quarter: 2022Q3

REPORT INFORMATION
  Report Type: Spontaneous
  Country: US (occurrence: None)
  Receive Date: 20220831
  Receipt Date: 20220831
  Transmission Date: 20221027
  Serious: Yes (Other)
  Sender: FDA-Public Use
  Company Number: None

PATIENT
  Age: 56 Year
  Sex: Female
  Weight: 83.25 kg

DRUGS (4)
  1. ASTEPRO [Suspect]
     Active Substance: AZELASTINE HYDROCHLORIDE
     Indication: Rhinitis allergic
     Dates: start: 20220820, end: 20220823
  2. BENADRYL [Concomitant]
     Active Substance: DIPHENHYDRAMINE HYDROCHLORIDE
  3. FLONASE [Concomitant]
     Active Substance: FLUTICASONE PROPIONATE
  4. FAMOTIDINE [Concomitant]
     Active Substance: FAMOTIDINE

REACTIONS (8)
  - Eye swelling [None]
  - Nasal congestion [None]
  - Cough [None]
  - Rash [None]
  - Dyspnoea [None]
  - Nasal congestion [None]
  - Allergic reaction to excipient [None]
  - Drug hypersensitivity [None]

NARRATIVE: CASE EVENT DATE: 20220820
